FAERS Safety Report 8605150-1 (Version None)
Quarter: 2012Q3

REPORT INFORMATION
  Report Type: 
  Country: None (occurrence: None)
  Receive Date: 20120820
  Receipt Date: 20120815
  Transmission Date: 20120928
  Serious: Yes (Other)
  Sender: FDA-Public Use
  Company Number: DE-PFIZER INC-2012147138

PATIENT
  Sex: Female

DRUGS (1)
  1. DOSTINEX [Suspect]
     Indication: PROLACTINOMA
     Dosage: 0.5 MG, WEEKLY
     Route: 064
     Dates: start: 20100426, end: 20100805

REACTIONS (2)
  - PEMPHIGUS [None]
  - MATERNAL EXPOSURE TIMING UNSPECIFIED [None]
